FAERS Safety Report 7931265-7 (Version None)
Quarter: 2011Q4

REPORT INFORMATION
  Report Type: 
  Country: None (occurrence: None)
  Receive Date: 20111121
  Receipt Date: 20111111
  Transmission Date: 20120403
  Serious: Yes (Hospitalization, Other)
  Sender: FDA-Public Use
  Company Number: JP-CELGENEUS-087-CCAZA-11091875

PATIENT
  Sex: Male
  Weight: 63 kg

DRUGS (34)
  1. PRIMOBOLAN-DEPOT INJ [Concomitant]
     Dosage: 20 MILLIGRAM
     Route: 048
     Dates: start: 20110518
  2. PLATELETS [Concomitant]
     Route: 041
     Dates: start: 20110606, end: 20110801
  3. URSO 250 [Concomitant]
     Dosage: 600 MILLIGRAM
     Route: 048
     Dates: start: 20110613
  4. CEFPIROME SULFATE [Concomitant]
     Dosage: 2 GRAM
     Route: 041
     Dates: start: 20110620, end: 20110622
  5. REMINARON [Concomitant]
     Dosage: 600 MILLIGRAM
     Route: 041
     Dates: start: 20110620, end: 20110622
  6. MEROPENEM [Concomitant]
     Dosage: 1.5 GRAM
     Route: 041
     Dates: start: 20110711, end: 20110719
  7. FLUCONAZOLE [Concomitant]
     Dosage: 1.5 GRAM
     Route: 041
     Dates: start: 20110702, end: 20110708
  8. LEVOFLOXACIN [Concomitant]
     Dosage: 500 MILLIGRAM
     Route: 048
     Dates: start: 20110616, end: 20110620
  9. LEVOFLOXACIN [Concomitant]
     Dosage: 500 MILLIGRAM
     Route: 048
     Dates: start: 20110825
  10. ROMIKACIN [Concomitant]
     Dosage: 400 MILLIGRAM
     Route: 041
     Dates: start: 20110802, end: 20110816
  11. ZOSYN [Concomitant]
     Dosage: 13.5 MILLIGRAM
     Route: 041
     Dates: start: 20110725, end: 20110728
  12. RED BLOOD CELLS [Concomitant]
     Route: 041
     Dates: start: 20110606, end: 20110801
  13. URIEF [Concomitant]
     Dosage: 8 MILLIGRAM
     Route: 048
     Dates: start: 20110521
  14. MOTILIUM [Concomitant]
     Dosage: 30 MILLIGRAM
     Route: 048
     Dates: start: 20110609, end: 20110615
  15. NASPALUN [Concomitant]
     Dosage: 3 GRAM
     Route: 041
     Dates: start: 20110609, end: 20110613
  16. PASIL [Concomitant]
     Dosage: 1000 MILLIGRAM
     Route: 041
     Dates: start: 20110728, end: 20110731
  17. ADONA [Concomitant]
     Dosage: 90 MICROGRAM
     Route: 048
     Dates: start: 20110521
  18. DIOVAN [Concomitant]
     Dosage: 80 MILLIGRAM
     Route: 048
     Dates: start: 20110405
  19. NASPALUN [Concomitant]
     Dosage: 2 GRAM
     Route: 041
     Dates: start: 20110720, end: 20110725
  20. MEROPENEM [Concomitant]
     Dosage: 1.5 GRAM
     Route: 041
     Dates: start: 20110817, end: 20110825
  21. ITRACONAZOLE [Concomitant]
     Dosage: 200 MILLIGRAM
     Route: 041
     Dates: start: 20110731, end: 20110801
  22. FAMOTIDINE [Concomitant]
     Dosage: 20 MILLIGRAM
     Route: 048
     Dates: start: 20110701
  23. DORIPENEM MONOHYDRATE [Concomitant]
     Dosage: .75 MILLIGRAM
     Route: 041
     Dates: start: 20110623, end: 20110708
  24. DORIPENEM MONOHYDRATE [Concomitant]
     Dosage: .75 MILLIGRAM
     Route: 041
     Dates: start: 20110801, end: 20110816
  25. NEUTROGIN [Concomitant]
     Dosage: 100 MICROGRAM
     Route: 058
     Dates: start: 20110623, end: 20110708
  26. METHYCOBAL [Concomitant]
     Dosage: 1500 MICROGRAM
     Route: 048
     Dates: start: 20110518
  27. FLUCONAZOLE [Concomitant]
     Dosage: 200 MILLIGRAM
     Route: 048
     Dates: start: 20110709
  28. FLUCONAZOLE [Concomitant]
     Dosage: 400 MILLIGRAM
     Route: 041
     Dates: start: 20110630, end: 20110701
  29. MINOCYCLINE HCL [Concomitant]
     Dosage: 200 MILLIGRAM
     Route: 041
     Dates: start: 20110720, end: 20110725
  30. NAOTAMIN [Concomitant]
     Dosage: 20 MILLIGRAM
     Route: 041
     Dates: start: 20110720, end: 20110720
  31. ITRACONAZOLE [Concomitant]
     Dosage: 400 MILLIGRAM
     Route: 041
     Dates: start: 20110729, end: 20110730
  32. AZACITIDINE [Suspect]
     Indication: MYELODYSPLASTIC SYNDROME
     Dosage: 60 MILLIGRAM/SQ. METER
     Route: 065
     Dates: start: 20110606, end: 20110612
  33. DUTASTERIDE [Concomitant]
     Dosage: .5 MILLIGRAM
     Route: 048
     Dates: start: 20101004
  34. ROMIKACIN [Concomitant]
     Dosage: 400 MILLIGRAM
     Route: 041
     Dates: start: 20110629, end: 20110710

REACTIONS (2)
  - BILE DUCT STONE [None]
  - CHOLANGITIS [None]
